FAERS Safety Report 10468891 (Version 6)
Quarter: 2016Q1

REPORT INFORMATION
  Report Type: Spontaneous
  Country: JP (occurrence: JP)
  Receive Date: 20140923
  Receipt Date: 20160311
  Transmission Date: 20160525
  Serious: Yes (Life-Threatening)
  Sender: FDA-Public Use
  Company Number: JP-ROCHE-1464326

PATIENT
  Age: 45 Year
  Sex: Female
  Weight: 39 kg

DRUGS (23)
  1. METHYLPREDNISOLONE. [Suspect]
     Active Substance: METHYLPREDNISOLONE
     Indication: IMMUNOSUPPRESSION
     Route: 042
     Dates: start: 20120509, end: 20120511
  2. VANCOMYCIN [Suspect]
     Active Substance: VANCOMYCIN
     Indication: PYREXIA
     Route: 042
     Dates: start: 20120508, end: 20120510
  3. FOSPHENYTOIN SODIUM. [Suspect]
     Active Substance: FOSPHENYTOIN SODIUM
     Indication: SEIZURE
     Dosage: 337.5-900MG, ONCE DAILY
     Route: 042
     Dates: start: 20120511, end: 20120528
  4. PREDONINE [Suspect]
     Active Substance: PREDNISOLONE\PREDNISOLONE ACETATE\PREDNISOLONE SODIUM SUCCINATE
     Route: 065
     Dates: start: 201205, end: 201205
  5. DORMICUM (INJ) [Suspect]
     Active Substance: MIDAZOLAM HYDROCHLORIDE
     Indication: STATUS EPILEPTICUS
     Dosage: INTRAVENOUS INJECTION, ABOUT 5-15 MG/TIME, CONTINUOUS, DILUTED WITH SALINE
     Route: 042
     Dates: start: 20120510, end: 20120518
  6. ZOVIRAX [Suspect]
     Active Substance: ACYCLOVIR
     Indication: PYREXIA
     Dosage: DOSAGE IS UNCERTAIN.
     Route: 042
     Dates: start: 20120508, end: 20120511
  7. MINOMYCIN [Suspect]
     Active Substance: MINOCYCLINE HYDROCHLORIDE
     Indication: INFECTION
  8. KEPPRA [Suspect]
     Active Substance: LEVETIRACETAM
     Indication: SEIZURE
     Dosage: 250-500MG
     Route: 048
     Dates: start: 20120515, end: 20120530
  9. METHYLPREDNISOLONE. [Suspect]
     Active Substance: METHYLPREDNISOLONE
     Route: 065
  10. VANCOMYCIN [Suspect]
     Active Substance: VANCOMYCIN
     Indication: INFECTION
     Route: 065
  11. MINOMYCIN [Suspect]
     Active Substance: MINOCYCLINE HYDROCHLORIDE
     Indication: PYREXIA
     Route: 042
  12. PREDONINE [Suspect]
     Active Substance: PREDNISOLONE\PREDNISOLONE ACETATE\PREDNISOLONE SODIUM SUCCINATE
     Route: 065
     Dates: start: 201205, end: 20120521
  13. DORMICUM (INJ) [Suspect]
     Active Substance: MIDAZOLAM HYDROCHLORIDE
     Dosage: INTRAVENOUS INJECTION, ABOUT 5-15 MG/TIME, CONTINUOUS, DILUTED WITH SALINE
     Route: 042
     Dates: start: 20120603, end: 20120617
  14. CEFEPIME [Suspect]
     Active Substance: CEFEPIME HYDROCHLORIDE
     Indication: PRODUCT USED FOR UNKNOWN INDICATION
     Route: 042
     Dates: start: 20120523, end: 20120525
  15. ZOVIRAX [Suspect]
     Active Substance: ACYCLOVIR
     Indication: INFECTION
  16. KEPPRA [Suspect]
     Active Substance: LEVETIRACETAM
     Route: 065
  17. DEPAKENE [Suspect]
     Active Substance: VALPROIC ACID
     Indication: SEIZURE
     Dosage: 200-600MG, THRICE DAILY
     Route: 048
     Dates: start: 20120516, end: 20120528
  18. PREDONINE [Suspect]
     Active Substance: PREDNISOLONE\PREDNISOLONE ACETATE\PREDNISOLONE SODIUM SUCCINATE
     Indication: IMMUNOSUPPRESSION
     Dosage: DOSAGE IS UNCERTAIN.
     Route: 065
     Dates: start: 20120512, end: 201205
  19. ROCEPHIN [Suspect]
     Active Substance: CEFTRIAXONE SODIUM
     Indication: PYREXIA
     Route: 042
     Dates: start: 20120508, end: 20120510
  20. RAVONAL [Suspect]
     Active Substance: THIOPENTAL
     Indication: ANAESTHESIA PROCEDURE
     Dosage: 150-250MG/HOUR; CONTINUOUS
     Route: 042
     Dates: start: 20120518, end: 20120602
  21. NOBELBAR [Suspect]
     Active Substance: PHENOBARBITAL SODIUM
     Indication: SEIZURE
     Dosage: 325-900MG, ONCE DAILY
     Route: 042
     Dates: start: 20120511, end: 20120516
  22. DIPRIVAN [Suspect]
     Active Substance: PROPOFOL
     Indication: ANAESTHESIA PROCEDURE
     Dosage: ABOUT 40-120 1/4 G/HOUR; CONTINUOUS
     Route: 042
     Dates: start: 20120510, end: 20120518
  23. PREDONINE [Suspect]
     Active Substance: PREDNISOLONE\PREDNISOLONE ACETATE\PREDNISOLONE SODIUM SUCCINATE
     Route: 042
     Dates: start: 201205, end: 201205

REACTIONS (3)
  - Multiple organ dysfunction syndrome [Recovering/Resolving]
  - Drug eruption [Unknown]
  - Histiocytosis haematophagic [Recovered/Resolved]

NARRATIVE: CASE EVENT DATE: 20120523
